FAERS Safety Report 5003237-6 (Version None)
Quarter: 2006Q2

REPORT INFORMATION
  Report Type: 
  Country: None (occurrence: None)
  Receive Date: 20060512
  Receipt Date: 20060501
  Transmission Date: 20061013
  Serious: Yes (Hospitalization, Other)
  Sender: FDA-Public Use
  Company Number: 2006058232

PATIENT
  Age: 80 Year
  Sex: Female
  Weight: 49.2153 kg

DRUGS (3)
  1. LYRICA [Suspect]
     Indication: PAIN
     Dosage: 75 MG (25 MG, 3 IN 1 D), ORAL
     Route: 048
     Dates: start: 20060321
  2. XANAX [Concomitant]
  3. TOPROL-XL [Concomitant]

REACTIONS (2)
  - DRUG INEFFECTIVE [None]
  - PNEUMONIA [None]
